FAERS Safety Report 9527073 (Version 1)
Quarter: 2013Q3

REPORT INFORMATION
  Report Type: Spontaneous
  Country: US (occurrence: US)
  Receive Date: 20130916
  Receipt Date: 20130916
  Transmission Date: 20140515
  Serious: No
  Sender: FDA-Public Use
  Company Number: US-TEVA-376890USA

PATIENT
  Age: 52 Year
  Sex: Female

DRUGS (4)
  1. FOLINIC ACID [Suspect]
     Dosage: CYCLIC - 1 DAY
     Route: 042
  2. ZIV-AFLIBERCEPT (ZALTRAP) [Suspect]
     Dosage: CYCLIC - 1 DAY
     Route: 042
  3. FLUOROURACIL [Suspect]
     Dosage: CYCLIC
     Route: 042
  4. IRINOTECAN [Suspect]
     Dosage: CYCLIC - 1 DAY
     Route: 042

REACTIONS (3)
  - Lacrimation increased [Unknown]
  - Abdominal pain upper [Unknown]
  - Diarrhoea [Unknown]
